FAERS Safety Report 7033782-3 (Version None)
Quarter: 2010Q4

REPORT INFORMATION
  Report Type: 
  Country: None (occurrence: None)
  Receive Date: 20101007
  Receipt Date: 20100927
  Transmission Date: 20110411
  Serious: Yes (Hospitalization)
  Sender: FDA-Public Use
  Company Number: PHHY2010JP57193

PATIENT
  Age: 62 Year
  Sex: Male

DRUGS (3)
  1. SYMMETREL [Suspect]
     Indication: PARKINSON'S DISEASE
     Dosage: 50 MG, TID
     Route: 048
  2. COMTAN [Suspect]
  3. LEVODOPA [Suspect]

REACTIONS (3)
  - DRUG LEVEL CHANGED [None]
  - RENAL IMPAIRMENT [None]
  - TREMOR [None]
